FAERS Safety Report 5423945-2 (Version None)
Quarter: 2007Q3

REPORT INFORMATION
  Report Type: 
  Country: None (occurrence: None)
  Receive Date: 20070727
  Receipt Date: 20060615
  Transmission Date: 20080115
  Serious: Yes (Hospitalization, Other)
  Sender: FDA-Public Use
  Company Number: THYM-10976

PATIENT
  Age: 53 Year
  Sex: Female
  Weight: 62.7 kg

DRUGS (4)
  1. THYMOGLOBULIN [Suspect]
     Indication: BONE MARROW TRANSPLANT
     Dosage: 0.5 MG/KG ONCE IV
     Route: 042
     Dates: start: 20060515, end: 20060515
  2. THYMOGLOBULIN [Suspect]
     Indication: BONE MARROW TRANSPLANT
     Dosage: 2.5 MG/KG ONCE IV
     Route: 042
     Dates: start: 20060516, end: 20060516
  3. THYMOGLOBULIN [Suspect]
     Indication: BONE MARROW TRANSPLANT
     Dosage: 3 MG/KG ONCE IV
     Route: 042
     Dates: start: 20060517, end: 20060517
  4. TACROLIMUS [Concomitant]

REACTIONS (2)
  - RENAL FAILURE ACUTE [None]
  - STOMATITIS [None]
